FAERS Safety Report 5407179-3 (Version None)
Quarter: 2007Q3

REPORT INFORMATION
  Report Type: 
  Country: None (occurrence: None)
  Receive Date: 20070807
  Receipt Date: 20070801
  Transmission Date: 20080115
  Serious: Yes (Hospitalization)
  Sender: FDA-Public Use
  Company Number: CN-MERCK-0708CHN00003

PATIENT
  Age: 77 Year
  Sex: Male

DRUGS (2)
  1. FOSAMAX [Suspect]
     Indication: EXOSTOSIS
     Route: 048
     Dates: start: 20070725, end: 20070725
  2. FOSAMAX [Suspect]
     Indication: OSTEOPOROSIS
     Route: 048
     Dates: start: 20070725, end: 20070725

REACTIONS (2)
  - CHEST PAIN [None]
  - DRUG ADMINISTRATION ERROR [None]
